FAERS Safety Report 4435475-5 (Version None)
Quarter: 2004Q3

REPORT INFORMATION
  Report Type: 
  Country: None (occurrence: None)
  Receive Date: 20040726
  Receipt Date: 20040521
  Transmission Date: 20050211
  Serious: No
  Sender: FDA-Public Use
  Company Number: USA040466310

PATIENT
  Age: 62 Year
  Sex: Female
  Weight: 64 kg

DRUGS (8)
  1. FORTEO [Suspect]
     Indication: OSTEOPOROSIS
     Dosage: 20 UG/1 DAY
     Dates: start: 20040203
  2. EVISTA [Suspect]
     Indication: OSTEOPOROSIS
     Dates: start: 19900101, end: 19900101
  3. ADVAIR DISKUS 100/50 [Concomitant]
  4. SYNTHROID [Concomitant]
  5. ALLEGRA [Concomitant]
  6. NASONEX [Concomitant]
  7. CITRACAL (CALCIUM CITRATE) [Concomitant]
  8. SALINE (SODIUM CHLORIDE) [Concomitant]

REACTIONS (5)
  - DIZZINESS [None]
  - INJECTION SITE ERYTHEMA [None]
  - INJECTION SITE HAEMORRHAGE [None]
  - INJECTION SITE PAIN [None]
  - MUSCLE CRAMP [None]
